FAERS Safety Report 25652001 (Version 1)
Quarter: 2025Q3

REPORT INFORMATION
  Report Type: Spontaneous
  Country: CA (occurrence: CA)
  Receive Date: 20250806
  Receipt Date: 20250806
  Transmission Date: 20251020
  Serious: Yes (Other)
  Sender: JOHNSON AND JOHNSON
  Company Number: CA-JNJFOC-20250801379

PATIENT
  Sex: Male

DRUGS (2)
  1. APALUTAMIDE [Suspect]
     Active Substance: APALUTAMIDE
     Indication: Prostate cancer
     Route: 048
     Dates: start: 202507
  2. ELIGARD [Suspect]
     Active Substance: LEUPROLIDE ACETATE
     Indication: Prostate cancer
     Route: 065

REACTIONS (6)
  - Abdominal hernia [Unknown]
  - Nephrostomy [Unknown]
  - Muscular weakness [Unknown]
  - Injection site pain [Recovered/Resolved]
  - Rash [Unknown]
  - Hot flush [Unknown]

NARRATIVE: CASE EVENT DATE: 20250701
